FAERS Safety Report 26020783 (Version 2)
Quarter: 2025Q4

REPORT INFORMATION
  Report Type: Report from Study
  Country: US (occurrence: US)
  Receive Date: 20251110
  Receipt Date: 20251112
  Transmission Date: 20260118
  Serious: Yes (Hospitalization)
  Sender: ALEXION PHARMACEUTICALS
  Company Number: 202503USA024482US

PATIENT
  Age: 13 Year
  Sex: Male

DRUGS (1)
  1. STRENSIQ [Suspect]
     Active Substance: ASFOTASE ALFA
     Indication: Phosphorus metabolism disorder
     Dosage: 2 MG/KG THREE TIMES PER WEEK
     Route: 065

REACTIONS (12)
  - Oropharyngeal fistula [Unknown]
  - Injection site pain [Unknown]
  - Injection site swelling [Unknown]
  - Skin disorder [Unknown]
  - Enuresis [Unknown]
  - Bone pain [Unknown]
  - Attention deficit hyperactivity disorder [Unknown]
  - Decreased activity [Unknown]
  - Lipoatrophy [Unknown]
  - Cyst [Unknown]
  - Hypermetropia [Unknown]
  - Weight increased [Unknown]
